FAERS Safety Report 24183868 (Version 1)
Quarter: 2024Q3

REPORT INFORMATION
  Report Type: Spontaneous
  Country: US (occurrence: US)
  Receive Date: 20240807
  Receipt Date: 20240807
  Transmission Date: 20241016
  Serious: No
  Sender: OTSUKA
  Company Number: US-OTSUKA-2024_019567

PATIENT
  Sex: Female

DRUGS (2)
  1. ABILIFY ASIMTUFII [Suspect]
     Active Substance: ARIPIPRAZOLE
     Indication: Product used for unknown indication
     Dosage: UNK EVERY 2 MONTH
     Route: 065
  2. METHAMPHETAMINE [Concomitant]
     Active Substance: METHAMPHETAMINE
     Indication: Sleep disorder
     Dosage: UNK
     Route: 065

REACTIONS (1)
  - Fatigue [Recovered/Resolved]
